FAERS Safety Report 24655611 (Version 1)
Quarter: 2024Q4

REPORT INFORMATION
  Report Type: Spontaneous
  Country: US (occurrence: US)
  Receive Date: 20241123
  Receipt Date: 20241123
  Transmission Date: 20250115
  Serious: Yes (Other)
  Sender: ACCORD
  Company Number: US-Accord-068897

PATIENT
  Age: 62 Year
  Sex: Male

DRUGS (2)
  1. MYCOPHENOLATE MOFETIL [Suspect]
     Active Substance: MYCOPHENOLATE MOFETIL
     Indication: Immunosuppression
     Route: 048
     Dates: start: 2004
  2. CYCLOSPORINE [Suspect]
     Active Substance: CYCLOSPORINE
     Indication: Immunosuppression
     Route: 048
     Dates: start: 2004

REACTIONS (2)
  - Candida infection [Recovered/Resolved]
  - Squamous cell carcinoma [Recovered/Resolved]
